FAERS Safety Report 9315231 (Version 2)
Quarter: 2013Q2

REPORT INFORMATION
  Report Type: Spontaneous
  Country: FR (occurrence: FR)
  Receive Date: 20130529
  Receipt Date: 20130624
  Transmission Date: 20140414
  Serious: Yes (Life-Threatening, Hospitalization, Other)
  Sender: FDA-Public Use
  Company Number: FR-ABBOTT-13P-056-1094110-00

PATIENT
  Age: 43 Year
  Sex: Male
  Weight: 66 kg

DRUGS (1)
  1. HUMIRA [Suspect]
     Indication: ANKYLOSING SPONDYLITIS
     Route: 058
     Dates: start: 201106, end: 201305

REACTIONS (3)
  - Anuria [Unknown]
  - Renal failure [Not Recovered/Not Resolved]
  - Legionella infection [Not Recovered/Not Resolved]
